FAERS Safety Report 7080592-7 (Version None)
Quarter: 2010Q4

REPORT INFORMATION
  Report Type: 
  Country: None (occurrence: None)
  Receive Date: 20101103
  Receipt Date: 20101025
  Transmission Date: 20110411
  Serious: Yes (Other)
  Sender: FDA-Public Use
  Company Number: FI-JNJFOC-20101006837

PATIENT
  Age: 31 Year
  Sex: Female

DRUGS (2)
  1. TAVANIC [Suspect]
     Indication: SINUSITIS
     Route: 048
  2. BURANA [Concomitant]

REACTIONS (1)
  - PANIC DISORDER [None]
